FAERS Safety Report 9121337 (Version 2)
Quarter: 2013Q2

REPORT INFORMATION
  Report Type: Report from Study
  Country: DE (occurrence: DE)
  Receive Date: 20130225
  Receipt Date: 20130416
  Transmission Date: 20140414
  Serious: Yes (Other)
  Sender: FDA-Public Use
  Company Number: DE-ROCHE-1194180

PATIENT
  Sex: Male
  Weight: 99.5 kg

DRUGS (17)
  1. METHOXY POLYETHYLENE GLYCOL-EPOETIN BETA [Suspect]
     Indication: NEPHROGENIC ANAEMIA
     Route: 058
     Dates: start: 20090126
  2. METHOXY POLYETHYLENE GLYCOL-EPOETIN BETA [Suspect]
     Route: 058
     Dates: start: 20090218
  3. METHOXY POLYETHYLENE GLYCOL-EPOETIN BETA [Suspect]
     Route: 058
     Dates: start: 20090406
  4. METHOXY POLYETHYLENE GLYCOL-EPOETIN BETA [Suspect]
     Route: 058
     Dates: start: 20090601
  5. METHOXY POLYETHYLENE GLYCOL-EPOETIN BETA [Suspect]
     Route: 058
     Dates: start: 20091019
  6. METHOXY POLYETHYLENE GLYCOL-EPOETIN BETA [Suspect]
     Route: 058
     Dates: start: 20100113
  7. RAMIPRIL [Concomitant]
     Indication: HYPERTENSION
     Route: 048
     Dates: start: 2007
  8. FUROSEMIDE [Concomitant]
     Route: 048
  9. MIMPARA [Concomitant]
     Route: 048
  10. DECOSTRIOL [Concomitant]
     Route: 048
  11. CALCIUM ACETATE [Concomitant]
     Route: 048
  12. GODAMED [Concomitant]
     Route: 065
  13. SIMVASTATIN [Concomitant]
     Route: 048
  14. DREISAVIT [Concomitant]
     Route: 048
  15. FERRLECIT [Concomitant]
     Route: 042
  16. HUMALOG [Concomitant]
     Route: 058
  17. LANTUS [Concomitant]
     Route: 058

REACTIONS (1)
  - Haemoglobin decreased [Not Recovered/Not Resolved]
